FAERS Safety Report 4967584-6 (Version None)
Quarter: 2006Q2

REPORT INFORMATION
  Report Type: 
  Country: None (occurrence: None)
  Receive Date: 20060403
  Receipt Date: 20060322
  Transmission Date: 20061013
  Serious: Yes (Other)
  Sender: FDA-Public Use
  Company Number: 2006BH006827

PATIENT

DRUGS (1)
  1. HEPARIN SODIUM [Suspect]
     Indication: CARDIAC OPERATION

REACTIONS (3)
  - ATRIAL FLUTTER [None]
  - HEPARIN-INDUCED THROMBOCYTOPENIA [None]
  - THROMBOSIS [None]
